FAERS Safety Report 7068364-0 (Version None)
Quarter: 2010Q4

REPORT INFORMATION
  Report Type: 
  Country: None (occurrence: None)
  Receive Date: 20101028
  Receipt Date: 20101021
  Transmission Date: 20110411
  Serious: Yes (Other)
  Sender: FDA-Public Use
  Company Number: A0888825A

PATIENT
  Sex: Female

DRUGS (1)
  1. AVANDIA [Suspect]
     Route: 048
     Dates: end: 20100301

REACTIONS (5)
  - CARDIAC DISORDER [None]
  - GASTRIC DISORDER [None]
  - HEADACHE [None]
  - MYOCARDIAL INFARCTION [None]
  - PAIN [None]
